FAERS Safety Report 9740034 (Version 3)
Quarter: 2013Q4

REPORT INFORMATION
  Report Type: Spontaneous
  Country: US (occurrence: US)
  Receive Date: 20131209
  Receipt Date: 20131216
  Transmission Date: 20140711
  Serious: Yes (Death, Hospitalization)
  Sender: FDA-Public Use
  Company Number: US-ACTELION-A-US2013-89159

PATIENT
  Age: 69 Year
  Sex: Female

DRUGS (11)
  1. TRACLEER [Suspect]
     Indication: PULMONARY ARTERIAL HYPERTENSION
     Dosage: 62.5 MG, BID
     Route: 048
  2. VENTAVIS [Suspect]
     Indication: PULMONARY ARTERIAL HYPERTENSION
     Dosage: 5 ML QID
     Route: 055
  3. COUMADIN [Concomitant]
     Dosage: 3 MG, QD
  4. SIMVASTATIN [Concomitant]
     Dosage: 40 MG, QD
  5. PROTONIX [Concomitant]
     Dosage: 40 MG, BID
  6. DIGOXIN [Concomitant]
     Dosage: 125 UNK, UNK
  7. ATROVENT [Concomitant]
     Dosage: 18 MCG/PUFF; 1 PUFF BID
  8. FUROSEMIDE [Concomitant]
     Dosage: 40 MG, BID
  9. ALBUTEROL [Concomitant]
     Dosage: 1 PUFF, BID
  10. TADALAFIL [Concomitant]
     Dosage: 20 MG, BID
  11. OXYGEN [Concomitant]

REACTIONS (15)
  - Multi-organ failure [Fatal]
  - Cardiac failure [Fatal]
  - Sepsis [Fatal]
  - Renal failure chronic [Fatal]
  - Hepatic cirrhosis [Fatal]
  - Diabetes mellitus [Fatal]
  - Pulmonary hypertension [Fatal]
  - Hyponatraemia [Unknown]
  - Oliguria [Unknown]
  - Fluid retention [Unknown]
  - Oedema [Unknown]
  - Dyspnoea [Unknown]
  - Chest pain [Unknown]
  - Fluid overload [Unknown]
  - Drug dose omission [Unknown]
